FAERS Safety Report 11458737 (Version 1)
Quarter: 2015Q3

REPORT INFORMATION
  Report Type: Spontaneous
  Country: None (occurrence: FR)
  Receive Date: 20150904
  Receipt Date: 20150904
  Transmission Date: 20151125
  Serious: Yes (Disabling)
  Sender: FDA-Public Use
  Company Number: FR-MEDAC PHARMA, INC.-1041640

PATIENT
  Age: 40 Year
  Sex: Female

DRUGS (2)
  1. METOJECT [Suspect]
     Active Substance: METHOTREXATE SODIUM
     Indication: PSORIATIC ARTHROPATHY
     Route: 058
     Dates: start: 201404, end: 201505
  2. FOLIC ACID. [Concomitant]
     Active Substance: FOLIC ACID

REACTIONS (8)
  - Abdominal pain [Recovered/Resolved]
  - Confusional state [Not Recovered/Not Resolved]
  - Presyncope [Recovered/Resolved]
  - Fatigue [Not Recovered/Not Resolved]
  - Disturbance in attention [Not Recovered/Not Resolved]
  - Tremor [Not Recovered/Not Resolved]
  - Nausea [Recovered/Resolved]
  - Blood cortisol increased [Not Recovered/Not Resolved]

NARRATIVE: CASE EVENT DATE: 201404
